FAERS Safety Report 9193579 (Version 1)
Quarter: 2013Q1

REPORT INFORMATION
  Report Type: Spontaneous
  Country: GB (occurrence: GB)
  Receive Date: 20130327
  Receipt Date: 20130327
  Transmission Date: 20140127
  Serious: Yes (Hospitalization)
  Sender: FDA-Public Use
  Company Number: GB-JNJFOC-20130315233

PATIENT
  Sex: 0

DRUGS (2)
  1. PREZISTA [Suspect]
     Indication: HIV INFECTION
     Route: 048
  2. NORVIR [Suspect]
     Indication: HIV INFECTION
     Route: 048
     Dates: start: 2010

REACTIONS (2)
  - Dysphagia [Unknown]
  - Wrong technique in drug usage process [Unknown]
